FAERS Safety Report 8821862 (Version 1)
Quarter: 2012Q4

REPORT INFORMATION
  Report Type: 
  Country: SE (occurrence: SE)
  Receive Date: 20121002
  Receipt Date: 20121002
  Transmission Date: 20130627
  Serious: Yes (Hospitalization)
  Sender: FDA-Public Use
  Company Number: SE-ABBOTT-12P-150-0988952-00

PATIENT
  Age: 69 None
  Sex: Female

DRUGS (2)
  1. HUMIRA [Suspect]
     Indication: ANKYLOSING SPONDYLITIS
     Dosage: 1 syringe, every second week
     Dates: end: 201202
  2. HUMIRA [Suspect]
     Dosage: 1 syringe, every second week
     Dates: end: 201206

REACTIONS (9)
  - Gastrointestinal inflammation [Unknown]
  - Fall [Unknown]
  - Gastric infection [Unknown]
  - Upper respiratory tract infection [Unknown]
  - Pneumonia [Unknown]
  - Intestinal perforation [Unknown]
  - Upper limb fracture [Unknown]
  - Diverticulitis [Unknown]
  - Abdominal pain upper [Unknown]
